FAERS Safety Report 10238190 (Version 1)
Quarter: 2014Q2

REPORT INFORMATION
  Report Type: Spontaneous
  Country: MY (occurrence: MY)
  Receive Date: 20140616
  Receipt Date: 20140616
  Transmission Date: 20141212
  Serious: Yes (Other)
  Sender: FDA-Public Use
  Company Number: MY-RANBAXY-2014R3-82109

PATIENT
  Age: 23 Year
  Sex: Female

DRUGS (2)
  1. ROZIDAL [Suspect]
     Indication: SCHIZOPHRENIA
     Dosage: 4 MG, DAILY
     Route: 048
  2. MANACE [Suspect]
     Indication: PSYCHOTIC DISORDER
     Dosage: 5 MG, QD
     Route: 030

REACTIONS (2)
  - Headache [Recovered/Resolved]
  - Gaze palsy [Recovered/Resolved]
